FAERS Safety Report 9932110 (Version 2)
Quarter: 2014Q1

REPORT INFORMATION
  Report Type: Spontaneous
  Country: IT (occurrence: None)
  Receive Date: 20140226
  Receipt Date: 20140306
  Transmission Date: 20141002
  Serious: Yes (Hospitalization)
  Sender: FDA-Public Use
  Company Number: AUR-APL-2014-02120

PATIENT
  Age: 29 Year
  Sex: Female

DRUGS (4)
  1. METFORMIN [Suspect]
     Indication: GLUCOSE TOLERANCE IMPAIRED
     Dosage: (500 MG, 1 IN 12HR)
  2. METFORMIN [Suspect]
     Indication: INSULIN RESISTANCE
     Dosage: (500 MG, 1 IN 12HR)
  3. METFORMIN [Suspect]
     Indication: OFF LABEL USE
     Dosage: (500 MG, 1 IN 12HR)
  4. LEVOTHYROXINE (LEVOTHYROXINE) [Suspect]
     Indication: HYPOTHYROIDISM

REACTIONS (12)
  - Rosacea [None]
  - Rash [None]
  - Telangiectasia [None]
  - Drug dose omission [None]
  - Lupus-like syndrome [None]
  - Myxoedema [None]
  - Pruritus [None]
  - Erythema [None]
  - Rash papular [None]
  - Overweight [None]
  - Hypersensitivity vasculitis [None]
  - Off label use [None]
